FAERS Safety Report 12919238 (Version 3)
Quarter: 2019Q1

REPORT INFORMATION
  Report Type: Spontaneous
  Country: DE (occurrence: DE)
  Receive Date: 20161108
  Receipt Date: 20190305
  Transmission Date: 20190417
  Serious: Yes (Death, Life-Threatening, Hospitalization, Other)
  Sender: FDA-Public Use
  Company Number: DE-ACCORD-045513

PATIENT
  Age: 15 Year
  Sex: Female
  Weight: 60 kg

DRUGS (4)
  1. MIRTAZAPINE. [Suspect]
     Active Substance: MIRTAZAPINE
     Dosage: DOSE 23.5 DF, DOSE PER KG BODY WEIGHT: 13 MG/KG
     Route: 048
     Dates: start: 20160921
  2. QUETIAPINE PROLONGED RELEASE 200 MG [Suspect]
     Active Substance: QUETIAPINE
     Dosage: ABSOLUTE TOTAL QUANTITY 14.5 GRAM, DOSE 25 MG/KG
     Route: 048
     Dates: start: 20160921
  3. IBUPROFEN 400 MG [Suspect]
     Active Substance: IBUPROFEN
     Dosage: ABSOLUTE TOTAL QUANTITY 5 GRAM
  4. SINUPRET FORTE [Suspect]
     Active Substance: HERBALS

REACTIONS (8)
  - Respiratory failure [Fatal]
  - Seizure [Unknown]
  - Toxicity to various agents [Unknown]
  - Acute respiratory distress syndrome [Fatal]
  - Loss of consciousness [Unknown]
  - Completed suicide [Fatal]
  - Hypotension [Unknown]
  - Hypoxia [Unknown]

NARRATIVE: CASE EVENT DATE: 20160924
